FAERS Safety Report 16442933 (Version 1)
Quarter: 2019Q2

REPORT INFORMATION
  Report Type: Spontaneous
  Country: CN (occurrence: CN)
  Receive Date: 20190617
  Receipt Date: 20190617
  Transmission Date: 20190711
  Serious: Yes (Life-Threatening, Hospitalization, Other)
  Sender: FDA-Public Use
  Company Number: CN-BRACCO-2019CN02953

PATIENT
  Age: 62 Year
  Sex: Male

DRUGS (1)
  1. IOPAMIRO [Suspect]
     Active Substance: IOPAMIDOL
     Indication: POSITRON EMISSION TOMOGRAM
     Dosage: 85 ML, SINGLE
     Route: 042
     Dates: start: 20190530, end: 20190530

REACTIONS (4)
  - Respiratory acidosis [Recovering/Resolving]
  - Bronchospasm [Recovering/Resolving]
  - Depressed level of consciousness [Recovering/Resolving]
  - Hypertension [Recovering/Resolving]

NARRATIVE: CASE EVENT DATE: 20190530
